FAERS Safety Report 5457524-8 (Version None)
Quarter: 2007Q3

REPORT INFORMATION
  Report Type: 
  Country: None (occurrence: None)
  Receive Date: 20070917
  Receipt Date: 20070904
  Transmission Date: 20080115
  Serious: Yes (Hospitalization)
  Sender: FDA-Public Use
  Company Number: 2007US002175

PATIENT
  Age: 47 Year
  Sex: Female

DRUGS (2)
  1. MYCAMINE [Suspect]
     Indication: SYSTEMIC CANDIDA
     Dosage: 150 MG, UID/QD,
  2. CASPOFUNGIN(CASPOFUNGIN) [Suspect]
     Indication: SYSTEMIC CANDIDA
     Dosage: 50 MG, UID/QD,

REACTIONS (4)
  - ABDOMINAL SEPSIS [None]
  - ANTIMICROBIAL SUSCEPTIBILITY TEST RESISTANT [None]
  - CARDIAC VALVE VEGETATION [None]
  - SYSTEMIC CANDIDA [None]
